FAERS Safety Report 26166352 (Version 1)
Quarter: 2025Q4

REPORT INFORMATION
  Report Type: Spontaneous
  Country: AU (occurrence: AU)
  Receive Date: 20251217
  Receipt Date: 20251217
  Transmission Date: 20260118
  Serious: Yes (Other)
  Sender: ACCORD
  Company Number: None

PATIENT
  Age: 37 Year
  Sex: Male

DRUGS (4)
  1. FINGOLIMOD [Suspect]
     Active Substance: FINGOLIMOD
     Indication: Product used for unknown indication
  2. METHOTREXATE [Suspect]
     Active Substance: METHOTREXATE
     Indication: Product used for unknown indication
  3. ALEMTUZUMAB [Concomitant]
     Active Substance: ALEMTUZUMAB
  4. RITUXIMAB [Concomitant]
     Active Substance: RITUXIMAB

REACTIONS (9)
  - Aphasia [Unknown]
  - Diffuse large B-cell lymphoma [Unknown]
  - Headache [Unknown]
  - Lymphocyte count decreased [Unknown]
  - Metabolic dysfunction-associated liver disease [Unknown]
  - Multiple sclerosis relapse [Unknown]
  - Ophthalmoplegia [Unknown]
  - Paraesthesia [Unknown]
  - Product use in unapproved indication [Unknown]
